FAERS Safety Report 9330559 (Version 1)
Quarter: 2013Q2

REPORT INFORMATION
  Report Type: Spontaneous
  Country: ZA (occurrence: ZA)
  Receive Date: 20130605
  Receipt Date: 20130605
  Transmission Date: 20140414
  Serious: Yes (Other)
  Sender: FDA-Public Use
  Company Number: PHHY2013ZA055711

PATIENT
  Age: 22 Year
  Sex: Female

DRUGS (2)
  1. RITALIN [Suspect]
     Indication: LEARNING DISORDER
     Dosage: 6-7 TABLETS, DAILY
     Route: 048
  2. RITALIN [Suspect]
     Indication: OFF LABEL USE

REACTIONS (1)
  - Hyperpyrexia [Recovering/Resolving]
